FAERS Safety Report 9785714 (Version 1)
Quarter: 2013Q4

REPORT INFORMATION
  Report Type: Spontaneous
  Country: US (occurrence: None)
  Receive Date: 20131226
  Receipt Date: 20131226
  Transmission Date: 20140711
  Serious: Yes (Hospitalization, Disabling, Other)
  Sender: FDA-Public Use
  Company Number: None

PATIENT
  Age: 17 Year
  Sex: Female

DRUGS (7)
  1. DEPO-PROVERA [Suspect]
     Indication: CONTRACEPTION
     Route: 042
     Dates: start: 20111104, end: 20130328
  2. PEPCID [Concomitant]
  3. PRILOSEC [Concomitant]
  4. OMEPRAZOLE [Concomitant]
  5. PROMETHAZINE [Concomitant]
  6. ONDANSETRON [Concomitant]
  7. TEMAZEPAM [Concomitant]

REACTIONS (18)
  - Nausea [None]
  - Vomiting [None]
  - Abdominal pain [None]
  - Dehydration [None]
  - Asthenia [None]
  - Anxiety [None]
  - Nervousness [None]
  - Restlessness [None]
  - Insomnia [None]
  - Pain [None]
  - Fatigue [None]
  - Mental disorder [None]
  - Disturbance in attention [None]
  - Weight decreased [None]
  - Aggression [None]
  - Educational problem [None]
  - Emotional disorder [None]
  - Gastrointestinal disorder [None]
